FAERS Safety Report 5569536-4 (Version None)
Quarter: 2007Q4

REPORT INFORMATION
  Report Type: 
  Country: None (occurrence: None)
  Receive Date: 20071220
  Receipt Date: 20071217
  Transmission Date: 20080405
  Serious: Yes (Hospitalization)
  Sender: FDA-Public Use
  Company Number: A0679998A

PATIENT
  Age: 49 Year
  Sex: Male
  Weight: 136.4 kg

DRUGS (1)
  1. FEOSOL IRON THERAPY CAPLETS [Suspect]
     Route: 048

REACTIONS (5)
  - ASTHENIA [None]
  - DIARRHOEA [None]
  - DISEASE PROGRESSION [None]
  - DRY GANGRENE [None]
  - VOMITING [None]
